FAERS Safety Report 8156403-5 (Version None)
Quarter: 2012Q1

REPORT INFORMATION
  Report Type: 
  Country: None (occurrence: None)
  Receive Date: 20120103
  Receipt Date: 20110921
  Transmission Date: 20120608
  Serious: No
  Sender: FDA-Public Use
  Company Number: AE-2011-000606

PATIENT
  Age: 64 Year
  Sex: Male
  Weight: 113.3993 kg

DRUGS (12)
  1. BUPROPION (BUPROPRION) [Concomitant]
  2. PEGASYS [Concomitant]
  3. ASCORBIC ACID [Concomitant]
  4. ASPIRIN [Concomitant]
  5. ASPIRIN [Concomitant]
  6. GABAPENTIN [Concomitant]
  7. INCIVEK [Suspect]
     Dosage: 2250 MG (750 MG, 3 IN 1 D), ORAL
     Route: 048
     Dates: start: 20110627
  8. ATENOLOL [Concomitant]
  9. ZOLPIDEM [Concomitant]
  10. RIBASPHERE [Concomitant]
  11. NEXIUM [Concomitant]
  12. SSRI (SSRI) [Concomitant]

REACTIONS (4)
  - ABDOMINAL DISTENSION [None]
  - ABDOMINAL PAIN [None]
  - DYSPHAGIA [None]
  - GASTROOESOPHAGEAL REFLUX DISEASE [None]
